FAERS Safety Report 8493399-0 (Version None)
Quarter: 2012Q3

REPORT INFORMATION
  Report Type: 
  Country: None (occurrence: None)
  Receive Date: 20120706
  Receipt Date: 20120704
  Transmission Date: 20120928
  Serious: Yes (Death)
  Sender: FDA-Public Use
  Company Number: CA-JNJFOC-20120702424

PATIENT
  Sex: Male

DRUGS (6)
  1. SIMPONI [Suspect]
     Route: 058
     Dates: start: 20100604, end: 20111214
  2. ETOPOSIDE [Concomitant]
     Dates: start: 20120101, end: 20120301
  3. CISPLATIN [Concomitant]
     Dates: start: 20120101, end: 20120301
  4. MORPHINE [Concomitant]
     Indication: BREAKTHROUGH PAIN
  5. SIMPONI [Suspect]
     Indication: RHEUMATOID ARTHRITIS
     Route: 058
     Dates: start: 20120613, end: 20120613
  6. DEXAMETHASONE SODIUM PHOSPHATE [Concomitant]
     Dates: start: 20120517

REACTIONS (1)
  - NEOPLASM MALIGNANT [None]
